FAERS Safety Report 5224514-X (Version None)
Quarter: 2007Q1

REPORT INFORMATION
  Report Type: 
  Country: None (occurrence: None)
  Receive Date: 20070130
  Receipt Date: 20070118
  Transmission Date: 20070707
  Serious: Yes (Other)
  Sender: FDA-Public Use
  Company Number: DE-PFIZER INC-2007005514

PATIENT
  Age: 36 Year
  Sex: Female

DRUGS (3)
  1. AROMASIN [Suspect]
     Route: 048
     Dates: start: 20040401, end: 20061101
  2. ZOLADEX [Concomitant]
     Dates: start: 20040401, end: 20070101
  3. OSTAC [Concomitant]
     Route: 048
     Dates: end: 20061001

REACTIONS (4)
  - ABDOMINAL TENDERNESS [None]
  - BLOOD BILIRUBIN INCREASED [None]
  - FATIGUE [None]
  - TRANSAMINASES INCREASED [None]
